FAERS Safety Report 7811446-3 (Version None)
Quarter: 2011Q4

REPORT INFORMATION
  Report Type: 
  Country: None (occurrence: None)
  Receive Date: 20111013
  Receipt Date: 20111007
  Transmission Date: 20120403
  Serious: Yes (Other)
  Sender: FDA-Public Use
  Company Number: US-B.I. PHARMACEUTICALS,INC./RIDGEFIELD-2011-BP-22360BP

PATIENT
  Age: 64 Year
  Sex: Female
  Weight: 86.64 kg

DRUGS (6)
  1. ORACEA [Concomitant]
     Dosage: 40 MG
     Route: 048
  2. TAMOXIFEN CITRATE [Concomitant]
  3. PRADAXA [Suspect]
     Indication: THROMBOPHLEBITIS SUPERFICIAL
     Dosage: 300 MG
     Route: 048
     Dates: start: 20110913
  4. SYNTHROID [Concomitant]
     Dosage: 50 MCG
  5. ZOMETA [Concomitant]
     Route: 042
  6. TOPROL-XL [Concomitant]

REACTIONS (3)
  - FATIGUE [None]
  - LETHARGY [None]
  - HEADACHE [None]
